FAERS Safety Report 9465050 (Version 2)
Quarter: 2013Q4

REPORT INFORMATION
  Report Type: Spontaneous
  Country: IT (occurrence: IT)
  Receive Date: 20130819
  Receipt Date: 20131112
  Transmission Date: 20140711
  Serious: Yes (Other)
  Sender: FDA-Public Use
  Company Number: IT-MYLANLABS-2013S1017748

PATIENT
  Age: 65 Year
  Sex: Female
  Weight: 95 kg

DRUGS (7)
  1. PACLITAXEL [Suspect]
     Indication: BREAST CANCER
     Route: 042
     Dates: start: 20130723, end: 20130723
  2. KARVEZIDE [Concomitant]
     Indication: HYPERTENSION
  3. CARDICOR [Concomitant]
     Indication: PRODUCT USED FOR UNKNOWN INDICATION
  4. LASIX [Concomitant]
     Indication: PRODUCT USED FOR UNKNOWN INDICATION
  5. GLICLAZIDE [Concomitant]
     Indication: TYPE 2 DIABETES MELLITUS
  6. CRESTOR [Concomitant]
     Indication: HYPERCHOLESTEROLAEMIA
  7. EUTIROX [Concomitant]
     Indication: HYPOTHYROIDISM

REACTIONS (4)
  - Blood pressure increased [Recovered/Resolved]
  - Cold sweat [Recovered/Resolved]
  - Flushing [Recovered/Resolved]
  - Heart rate decreased [Recovered/Resolved]
